FAERS Safety Report 7632506-6 (Version None)
Quarter: 2011Q3

REPORT INFORMATION
  Report Type: 
  Country: None (occurrence: None)
  Receive Date: 20110725
  Receipt Date: 20100927
  Transmission Date: 20111222
  Serious: No
  Sender: FDA-Public Use
  Company Number: US-BRISTOL-MYERS SQUIBB COMPANY-15305220

PATIENT
  Age: 65 Year
  Sex: Male

DRUGS (3)
  1. COUMADIN [Suspect]
  2. PREVACID [Concomitant]
  3. LIPITOR [Concomitant]

REACTIONS (3)
  - CHROMATURIA [None]
  - INTERNATIONAL NORMALISED RATIO ABNORMAL [None]
  - URINE ODOUR ABNORMAL [None]
